FAERS Safety Report 5356395-8 (Version None)
Quarter: 2007Q2

REPORT INFORMATION
  Report Type: 
  Country: None (occurrence: None)
  Receive Date: 20070530
  Receipt Date: 20061214
  Transmission Date: 20071010
  Serious: Yes (Hospitalization, Other)
  Sender: FDA-Public Use
  Company Number: US200609006073

PATIENT
  Age: 42 Year
  Sex: Male
  Weight: 88.4 kg

DRUGS (9)
  1. ZYPREXA [Suspect]
     Indication: DEPRESSION
     Dates: start: 19970101, end: 20030101
  2. CLOZARIL [Concomitant]
  3. SEROQUEL [Concomitant]
  4. RISPERIDONE [Concomitant]
  5. THORAZINE [Concomitant]
  6. HALDOL SOLUTAB [Concomitant]
  7. TEGRETOL [Concomitant]
  8. DEPAKOTE [Concomitant]
  9. WELLBUTRIN [Concomitant]

REACTIONS (4)
  - DIABETES MELLITUS [None]
  - DIABETIC COMA [None]
  - DIABETIC KETOACIDOSIS [None]
  - METABOLIC DISORDER [None]
